FAERS Safety Report 5025342-0 (Version None)
Quarter: 2006Q2

REPORT INFORMATION
  Report Type: 
  Country: None (occurrence: None)
  Receive Date: 20060607
  Receipt Date: 20060523
  Transmission Date: 20061013
  Serious: Yes (Other)
  Sender: FDA-Public Use
  Company Number: 2006S1000103

PATIENT
  Age: 65 Year
  Sex: Male

DRUGS (2)
  1. CUBICIN [Suspect]
     Indication: STAPHYLOCOCCAL BACTERAEMIA
     Dosage: 6 MG/KG; Q24H;
  2. LINEZOLID [Concomitant]

REACTIONS (3)
  - ACUTE ENDOCARDITIS [None]
  - DRUG INEFFECTIVE FOR UNAPPROVED INDICATION [None]
  - ENDOCARDITIS BACTERIAL [None]
